FAERS Safety Report 11186163 (Version 2)
Quarter: 2015Q3

REPORT INFORMATION
  Report Type: Spontaneous
  Country: CN (occurrence: CN)
  Receive Date: 20150612
  Receipt Date: 20150819
  Transmission Date: 20151125
  Serious: Yes (Hospitalization)
  Sender: FDA-Public Use
  Company Number: CN-ABBVIE-15P-035-1408544-00

PATIENT
  Age: 4 Year
  Sex: Male

DRUGS (2)
  1. CHLORPHENAMINE MALEATE W/NITRAZEPAM/PHENOBARB [Suspect]
     Active Substance: CHLORPHENIRAMINE\NITRAZEPAM\PHENOBARBITAL\PHENYLPROPANOLAMINE\PYRIDOXINE
     Indication: PRODUCT USED FOR UNKNOWN INDICATION
     Route: 048
     Dates: start: 20150604, end: 20150604
  2. DEPAKINE CHRONO [Suspect]
     Active Substance: VALPROATE SODIUM
     Indication: PRODUCT USED FOR UNKNOWN INDICATION
     Dosage: EXTENDED RELEASE
     Route: 048
     Dates: start: 20150604, end: 20150604

REACTIONS (6)
  - Accidental exposure to product [Recovering/Resolving]
  - Coma [Recovered/Resolved]
  - Toxicity to various agents [Recovering/Resolving]
  - Food poisoning [Recovering/Resolving]
  - Hyperthermia [Recovering/Resolving]
  - Pneumonia [Recovered/Resolved]

NARRATIVE: CASE EVENT DATE: 20150604
